FAERS Safety Report 16799152 (Version 2)
Quarter: 2019Q3

REPORT INFORMATION
  Report Type: Spontaneous
  Country: US (occurrence: US)
  Receive Date: 20190912
  Receipt Date: 20190919
  Transmission Date: 20191005
  Serious: Yes (Other)
  Sender: FDA-Public Use
  Company Number: US-PFIZER INC-2019394787

PATIENT
  Age: 50 Year
  Sex: Male
  Weight: 112.93 kg

DRUGS (1)
  1. GABAPENTIN. [Suspect]
     Active Substance: GABAPENTIN
     Indication: NEUROPATHY PERIPHERAL
     Dosage: 800 MG, 3X/DAY
     Route: 048
     Dates: start: 20190727

REACTIONS (10)
  - Fall [Unknown]
  - Pain [Not Recovered/Not Resolved]
  - Abdominal pain [Unknown]
  - Chest pain [Unknown]
  - Drug ineffective for unapproved indication [Unknown]
  - Gout [Unknown]
  - Back pain [Unknown]
  - Depression [Unknown]
  - Testicular pain [Unknown]
  - Off label use [Unknown]
